FAERS Safety Report 4889184-9 (Version None)
Quarter: 2006Q1

REPORT INFORMATION
  Report Type: 
  Country: None (occurrence: None)
  Receive Date: 20060124
  Receipt Date: 20060116
  Transmission Date: 20060701
  Serious: Yes (Hospitalization)
  Sender: FDA-Public Use
  Company Number: US-JNJFOC-20051205910

PATIENT
  Sex: Female
  Weight: 73.48 kg

DRUGS (6)
  1. REMICADE [Suspect]
     Indication: RHEUMATOID ARTHRITIS
     Route: 042
  2. PREDNISONE [Concomitant]
  3. METHOTREXATE [Concomitant]
  4. ANALGESICS [Concomitant]
  5. NSAID'S [Concomitant]
  6. LEFLUNOMIDE [Concomitant]

REACTIONS (2)
  - RENAL DISORDER [None]
  - UPPER RESPIRATORY TRACT INFECTION [None]
